FAERS Safety Report 23175113 (Version 2)
Quarter: 2023Q4

REPORT INFORMATION
  Report Type: Report from Study
  Country: CA (occurrence: CA)
  Receive Date: 20231112
  Receipt Date: 20231213
  Transmission Date: 20240110
  Serious: Yes (Other)
  Sender: FDA-Public Use
  Company Number: CA-JNJFOC-20230930002

PATIENT
  Age: 54 Year
  Sex: Male
  Weight: 87 kg

DRUGS (1)
  1. REMICADE [Suspect]
     Active Substance: INFLIXIMAB
     Indication: Behcet^s syndrome
     Dosage: V1: EXPIRY DATE: 31-MAR-2026
     Route: 041

REACTIONS (1)
  - Behcet^s syndrome [Recovering/Resolving]

NARRATIVE: CASE EVENT DATE: 20230909
